FAERS Safety Report 8288865-7 (Version None)
Quarter: 2012Q2

REPORT INFORMATION
  Report Type: 
  Country: None (occurrence: None)
  Receive Date: 20120411
  Receipt Date: 20120402
  Transmission Date: 20120825
  Serious: Yes (Other)
  Sender: FDA-Public Use
  Company Number: JPI-P-020071

PATIENT
  Age: 55 Year
  Sex: Male

DRUGS (26)
  1. XYREM [Suspect]
     Indication: APNOEA
     Dosage: 6 GM (3 GM, 2 IN 1 D), ORAL 8 GM (4GM, 2 IN 1 D), ORAL 4.5 GM (4.5 GM, 1 IN 1 D), ORAL
     Route: 048
     Dates: start: 20090515
  2. XYREM [Suspect]
     Indication: APNOEA
     Dosage: 6 GM (3 GM, 2 IN 1 D), ORAL 8 GM (4GM, 2 IN 1 D), ORAL 4.5 GM (4.5 GM, 1 IN 1 D), ORAL
     Route: 048
     Dates: start: 20101115
  3. AMITRIPTYLINE HCL [Concomitant]
  4. PREGABALIN (CAPSULES) [Concomitant]
  5. MULTIVITAMIN W/IRON [Concomitant]
  6. DESVENLAFAXINE SUCCINATE [Concomitant]
  7. ASPIRIN BUFFERED (TABLETS) [Concomitant]
  8. CARVEDILOL [Concomitant]
  9. VISION FORMULA [Concomitant]
  10. LEVOTHYROXINE SODIUM [Concomitant]
  11. CABERGOLINE (TABLETS) [Concomitant]
  12. METOPROLOL SUCCINATE [Concomitant]
  13. LISINOPRIL [Concomitant]
  14. GUAIFENESIN (600 MILLIGRAM) [Concomitant]
  15. BUPROPION HCL (TABLETS) [Concomitant]
  16. ESOMEPRAZOLE MAGNESIUM (CAPSULES) [Concomitant]
  17. SOMAVERT (SOLUTION) [Concomitant]
  18. B-12 (CAPSULES) [Concomitant]
  19. AMPHETAMINE AND DEXTROAMPHETAMINE SALTS [Concomitant]
  20. VITAMIN B COMPLEX CAP [Concomitant]
  21. MORPHINE SUL TAB [Concomitant]
  22. MOMETASONE FUROATE MONOHYDRATE (SUSPENSION) [Concomitant]
  23. BUMETANIDE [Concomitant]
  24. FOLIC ACID TAB [Concomitant]
  25. TESTOSTERONE [Concomitant]
  26. OMEGA-3 POLYUNSATURATED FATTY ACIDS (TABLETS) [Concomitant]

REACTIONS (11)
  - DRY MOUTH [None]
  - PROCEDURAL PAIN [None]
  - RHINITIS ALLERGIC [None]
  - SPINAL COLUMN STENOSIS [None]
  - OEDEMA PERIPHERAL [None]
  - HEADACHE [None]
  - WEIGHT DECREASED [None]
  - FATIGUE [None]
  - SOMNOLENCE [None]
  - POOR QUALITY SLEEP [None]
  - DYSPEPSIA [None]
